FAERS Safety Report 21213193 (Version 2)
Quarter: 2022Q3

REPORT INFORMATION
  Report Type: Spontaneous
  Country: US (occurrence: US)
  Receive Date: 20220815
  Receipt Date: 20220926
  Transmission Date: 20221026
  Serious: Yes (Other)
  Sender: FDA-Public Use
  Company Number: US-ELI_LILLY_AND_COMPANY-US202208003311

PATIENT
  Sex: Female
  Weight: 48 kg

DRUGS (2)
  1. TALTZ [Suspect]
     Active Substance: IXEKIZUMAB
     Indication: Psoriasis
     Dosage: 80 MG, OTHER (LOADING DOSE)
     Route: 058
     Dates: start: 20220217
  2. TALTZ [Suspect]
     Active Substance: IXEKIZUMAB
     Dosage: 40 MG, OTHER (EVERY 4 WEEKS)
     Route: 058
     Dates: end: 202206

REACTIONS (1)
  - Anaphylactic reaction [Recovered/Resolved]
